FAERS Safety Report 8256355-3 (Version None)
Quarter: 2012Q2

REPORT INFORMATION
  Report Type: 
  Country: None (occurrence: None)
  Receive Date: 20120402
  Receipt Date: 20120402
  Transmission Date: 20120825
  Serious: Yes (Other)
  Sender: FDA-Public Use
  Company Number: None

PATIENT
  Sex: Female
  Weight: 63.5036 kg

DRUGS (1)
  1. PROAIR HFA [Suspect]
     Indication: DYSPNOEA
     Dosage: PROAIR INH 2 PUF 4X DAILY ORAL INHALATION
     Route: 055
     Dates: start: 20120320, end: 20120321

REACTIONS (1)
  - ERYTHEMA MULTIFORME [None]
